FAERS Safety Report 12930846 (Version 1)
Quarter: 2016Q4

REPORT INFORMATION
  Report Type: Spontaneous
  Country: US (occurrence: US)
  Receive Date: 20161110
  Receipt Date: 20161110
  Transmission Date: 20170207
  Serious: No
  Sender: FDA-Public Use
  Company Number: US-TEVA-684829USA

PATIENT
  Age: 40 Year

DRUGS (6)
  1. VITAMIN C [Concomitant]
     Active Substance: ASCORBIC ACID
  2. POTASSIUM ER TAB [Concomitant]
  3. RITUXAN [Suspect]
     Active Substance: RITUXIMAB
     Dosage: 6 TREATMENTS
     Route: 065
     Dates: end: 20160610
  4. TREANDA [Suspect]
     Active Substance: BENDAMUSTINE HYDROCHLORIDE
     Dosage: SIX TREATMENTS
     Route: 065
     Dates: end: 20160610
  5. ALLOPURINOL. [Concomitant]
     Active Substance: ALLOPURINOL
  6. METOPROLOL. [Concomitant]
     Active Substance: METOPROLOL

REACTIONS (4)
  - Neutropenia [Recovered/Resolved with Sequelae]
  - Bone marrow failure [Recovered/Resolved with Sequelae]
  - Anaemia [Recovered/Resolved with Sequelae]
  - Thrombocytopenia [Recovered/Resolved with Sequelae]

NARRATIVE: CASE EVENT DATE: 20160705
